FAERS Safety Report 25633263 (Version 1)
Quarter: 2025Q3

REPORT INFORMATION
  Report Type: Spontaneous
  Country: US (occurrence: US)
  Receive Date: 20250801
  Receipt Date: 20250801
  Transmission Date: 20251020
  Serious: Yes (Hospitalization, Other)
  Sender: HIKMA
  Company Number: US-HIKMA PHARMACEUTICALS USA INC.-US-H14001-25-08914

PATIENT
  Age: 29 Year
  Sex: Female

DRUGS (3)
  1. ALPRAZOLAM [Suspect]
     Active Substance: ALPRAZOLAM
     Indication: Product used for unknown indication
     Route: 065
  2. METHAMPHETAMINE [Suspect]
     Active Substance: METHAMPHETAMINE
     Indication: Product used for unknown indication
     Route: 065
  3. OXYCODONE [Suspect]
     Active Substance: OXYCODONE
     Indication: Product used for unknown indication
     Route: 065

REACTIONS (15)
  - Speech disorder [Unknown]
  - Thinking abnormal [Recovering/Resolving]
  - Disorientation [Unknown]
  - Disturbance in attention [Unknown]
  - Dysarthria [Unknown]
  - Leukocytosis [Unknown]
  - Mood swings [Unknown]
  - Anaemia [Unknown]
  - Hallucination, auditory [Recovering/Resolving]
  - Suicidal ideation [Recovered/Resolved]
  - Anxiety [Unknown]
  - Nausea [Unknown]
  - Psychomotor hyperactivity [Unknown]
  - Drug abuse [Unknown]
  - Maternal exposure during pregnancy [Unknown]
